FAERS Safety Report 20151475 (Version 1)
Quarter: 2021Q4

REPORT INFORMATION
  Report Type: Report from Study
  Country: US (occurrence: US)
  Receive Date: 20211206
  Receipt Date: 20211206
  Transmission Date: 20220303
  Serious: Yes (Other)
  Sender: FDA-Public Use
  Company Number: US-UCBSA-2021035986

PATIENT
  Sex: Male

DRUGS (1)
  1. CERTOLIZUMAB PEGOL [Suspect]
     Active Substance: CERTOLIZUMAB PEGOL
     Indication: Psoriasis
     Dosage: 400 MILLIGRAM, EV 2 WEEKS(QOW)
     Dates: start: 20210510, end: 20211001

REACTIONS (5)
  - Blood bilirubin increased [Not Recovered/Not Resolved]
  - Purpura [Recovering/Resolving]
  - Liver disorder [Not Recovered/Not Resolved]
  - Erythema [Recovering/Resolving]
  - Drug ineffective [Unknown]
